FAERS Safety Report 6405281-0 (Version None)
Quarter: 2009Q4

REPORT INFORMATION
  Report Type: 
  Country: None (occurrence: None)
  Receive Date: 20091014
  Receipt Date: 20090930
  Transmission Date: 20100525
  Serious: Yes (Hospitalization)
  Sender: FDA-Public Use
  Company Number: 2009AC000050

PATIENT
  Sex: Female

DRUGS (13)
  1. DIGOXIN [Suspect]
     Dosage: 0.125 MG; QD; PO
     Route: 048
  2. COUMADIN [Concomitant]
  3. DIOVAN [Concomitant]
  4. NORVASC [Concomitant]
  5. LOPRESSOR [Concomitant]
  6. DILTIAZEM [Concomitant]
  7. DARVOCET [Concomitant]
  8. PLENDIL [Concomitant]
  9. METOPROLOL [Concomitant]
  10. FLEXERIL [Concomitant]
  11. KEFLEX [Concomitant]
  12. PERCOCET [Concomitant]
  13. DEMEROL [Concomitant]

REACTIONS (10)
  - ANXIETY [None]
  - ASTHENIA [None]
  - ATRIAL FIBRILLATION [None]
  - CHEST DISCOMFORT [None]
  - COMPRESSION FRACTURE [None]
  - DEFORMITY [None]
  - DYSPNOEA [None]
  - ECONOMIC PROBLEM [None]
  - FALL [None]
  - PAIN [None]
